FAERS Safety Report 5045699-4 (Version None)
Quarter: 2006Q3

REPORT INFORMATION
  Report Type: 
  Country: None (occurrence: None)
  Receive Date: 20060710
  Receipt Date: 20060706
  Transmission Date: 20061208
  Serious: Yes (Life-Threatening, Hospitalization, Other)
  Sender: FDA-Public Use
  Company Number: US-RB-3546-2006

PATIENT
  Age: 2 Year
  Sex: Male

DRUGS (1)
  1. SUBOXONE [Suspect]

REACTIONS (1)
  - OVERDOSE [None]
